FAERS Safety Report 7879216-8 (Version None)
Quarter: 2011Q4

REPORT INFORMATION
  Report Type: 
  Country: None (occurrence: None)
  Receive Date: 20111101
  Receipt Date: 20111028
  Transmission Date: 20120403
  Serious: Yes (Other)
  Sender: FDA-Public Use
  Company Number: JP-PFIZER INC-2011265080

PATIENT
  Age: 68 Year
  Sex: Male

DRUGS (6)
  1. LANSOPRAZOLE [Concomitant]
     Dosage: 15 MG DAILY
     Route: 048
  2. NIFEDIPINE [Concomitant]
     Dosage: 40 MG DAILY
     Route: 048
  3. METHISTA [Concomitant]
     Dosage: 1500 MG DAILY
     Route: 048
  4. RIZE [Concomitant]
     Dosage: 15 MG DAILY
     Route: 048
  5. LYRICA [Suspect]
     Dosage: 75 MG DAILY
     Route: 048
     Dates: start: 20111027
  6. AMBROXOL HYDROCHLORIDE [Concomitant]
     Dosage: 45 MG DAILY
     Route: 048

REACTIONS (3)
  - HAEMATEMESIS [None]
  - DIARRHOEA [None]
  - HAEMATOCHEZIA [None]
